FAERS Safety Report 25564320 (Version 2)
Quarter: 2025Q3

REPORT INFORMATION
  Report Type: Spontaneous
  Country: US (occurrence: US)
  Receive Date: 20250716
  Receipt Date: 20250717
  Transmission Date: 20251021
  Serious: Yes (Other)
  Sender: ABBVIE
  Company Number: US-ABBVIE-6371089

PATIENT
  Age: 76 Year
  Sex: Male

DRUGS (4)
  1. LUPRON [Suspect]
     Active Substance: LEUPROLIDE ACETATE
     Indication: Product used for unknown indication
     Route: 065
  2. ORGOVYX [Suspect]
     Active Substance: RELUGOLIX
     Indication: Prostate cancer
     Route: 048
     Dates: start: 20250123
  3. ORGOVYX [Suspect]
     Active Substance: RELUGOLIX
     Indication: Prostate cancer
     Route: 048
     Dates: start: 20250120, end: 20250120
  4. ORGOVYX [Suspect]
     Active Substance: RELUGOLIX
     Indication: Prostate cancer
     Route: 048
     Dates: start: 20250121, end: 20250122

REACTIONS (13)
  - Miliaria [Unknown]
  - Pain [Unknown]
  - Sleep deficit [Unknown]
  - Arthralgia [Unknown]
  - Sluggishness [Unknown]
  - Injection site reaction [Unknown]
  - Weight increased [Unknown]
  - Myalgia [Unknown]
  - Incorrect dose administered [Unknown]
  - Mobility decreased [Unknown]
  - Pruritus [Unknown]
  - Joint swelling [Unknown]
  - Rash [Unknown]

NARRATIVE: CASE EVENT DATE: 20250123
